FAERS Safety Report 9459580 (Version 1)
Quarter: 2013Q3

REPORT INFORMATION
  Report Type: Spontaneous
  Country: US (occurrence: US)
  Receive Date: 20130815
  Receipt Date: 20130815
  Transmission Date: 20140515
  Serious: No
  Sender: FDA-Public Use
  Company Number: US-B.I. PHARMACEUTICALS,INC./RIDGEFIELD-2013-BI-24117BP

PATIENT
  Age: 62 Year
  Sex: Female
  Weight: 56 kg

DRUGS (5)
  1. COMBIVENT [Suspect]
     Indication: ASTHMA
     Dosage: STRENGTH: 18 MCG / 103 MCG; DAILY DOSE: 144 MCG/ 824 MCG
     Route: 055
     Dates: start: 2003
  2. CLONIDINE [Concomitant]
     Indication: HYPERTENSION
     Dosage: 0.9 MG
     Route: 048
  3. VERAPAMIL [Concomitant]
     Indication: HYPERTENSION
     Dosage: 360 MG
     Route: 048
  4. TRILEPTAL [Concomitant]
     Indication: EPILEPSY
     Dosage: 900 MG
     Route: 048
  5. LORTAB [Concomitant]
     Indication: INTERVERTEBRAL DISC PROTRUSION
     Dosage: STRENGTH: 10/325 MG; DAILY DOSE: 60/1950 MG
     Route: 048

REACTIONS (3)
  - Glossodynia [Recovered/Resolved]
  - Off label use [Not Recovered/Not Resolved]
  - Product quality issue [Recovered/Resolved]
